FAERS Safety Report 18436340 (Version 1)
Quarter: 2020Q4

REPORT INFORMATION
  Report Type: Spontaneous
  Country: CN (occurrence: CN)
  Receive Date: 20201028
  Receipt Date: 20201028
  Transmission Date: 20210114
  Serious: Yes (Hospitalization, Other)
  Sender: FDA-Public Use
  Company Number: CN-009507513-2010CHN010538

PATIENT
  Age: 3 Year
  Sex: Female

DRUGS (1)
  1. SINGULAIR [Suspect]
     Active Substance: MONTELUKAST SODIUM
     Dosage: 7 PILLS
     Route: 048
     Dates: start: 202010

REACTIONS (3)
  - Face oedema [Recovering/Resolving]
  - Accidental overdose [Unknown]
  - Endotracheal intubation complication [Unknown]

NARRATIVE: CASE EVENT DATE: 202010
